FAERS Safety Report 5533113-1 (Version None)
Quarter: 2007Q4

REPORT INFORMATION
  Report Type: 
  Country: None (occurrence: None)
  Receive Date: 20071120
  Receipt Date: 20070801
  Transmission Date: 20080405
  Serious: No
  Sender: FDA-Public Use
  Company Number: WAES 0706USA02305

PATIENT
  Age: 60 Year
  Sex: Male

DRUGS (4)
  1. JANUVIA [Suspect]
     Indication: TYPE 2 DIABETES MELLITUS
     Dosage: DAILY/PO
     Route: 048
     Dates: start: 20070201, end: 20070620
  2. SYMLIN [Suspect]
     Dates: end: 20070620
  3. AMOLIN [Concomitant]
  4. INSULIN [Concomitant]

REACTIONS (1)
  - WHEEZING [None]
